FAERS Safety Report 8156663-0 (Version None)
Quarter: 2012Q1

REPORT INFORMATION
  Report Type: 
  Country: None (occurrence: None)
  Receive Date: 20120222
  Receipt Date: 20120214
  Transmission Date: 20120608
  Serious: Yes (Hospitalization)
  Sender: FDA-Public Use
  Company Number: US-BAYER-2011-068600

PATIENT
  Age: 16 Year
  Sex: Female
  Weight: 91 kg

DRUGS (3)
  1. YAZ [Suspect]
  2. YAZ [Suspect]
     Indication: PREMENSTRUAL SYNDROME
     Dosage: UNK
     Route: 048
     Dates: start: 20081204, end: 20090605
  3. NSAID'S [Concomitant]
     Dosage: UNK
     Dates: start: 20060101

REACTIONS (11)
  - INJURY [None]
  - ABDOMINAL PAIN LOWER [None]
  - PAIN [None]
  - CHOLELITHIASIS [None]
  - CHOLECYSTITIS CHRONIC [None]
  - ABDOMINAL PAIN UPPER [None]
  - BILIARY COLIC [None]
  - VOMITING [None]
  - NAUSEA [None]
  - GALLBLADDER DISORDER [None]
  - ABDOMINAL PAIN [None]
